FAERS Safety Report 16279153 (Version 2)
Quarter: 2019Q2

REPORT INFORMATION
  Report Type: Spontaneous
  Country: DE (occurrence: DE)
  Receive Date: 20190506
  Receipt Date: 20190510
  Transmission Date: 20190711
  Serious: Yes (Other)
  Sender: FDA-Public Use
  Company Number: PHHY2019DE102742

PATIENT
  Sex: Male

DRUGS (4)
  1. ZOLPIDEM [Suspect]
     Active Substance: ZOLPIDEM\ZOLPIDEM TARTRATE
     Indication: SLEEP DISORDER
     Dosage: 140 DF, QD
     Route: 065
  2. ZOLPIDEM AL [Suspect]
     Active Substance: ZOLPIDEM TARTRATE
     Indication: SLEEP DISORDER
     Dosage: 0.5 DF, QD
     Route: 065
  3. ZOLPIDEM [Suspect]
     Active Substance: ZOLPIDEM\ZOLPIDEM TARTRATE
     Indication: PAIN
  4. ZOLPIDEM AL [Suspect]
     Active Substance: ZOLPIDEM TARTRATE
     Indication: PAIN
     Dosage: 80 DF, QD
     Route: 065
     Dates: start: 2018

REACTIONS (5)
  - Psychotic disorder [Unknown]
  - Idiopathic intracranial hypertension [Unknown]
  - Incorrect dose administered [Unknown]
  - Intracranial pressure increased [Unknown]
  - Epilepsy [Unknown]

NARRATIVE: CASE EVENT DATE: 2017
